FAERS Safety Report 9473436 (Version 1)
Quarter: 2013Q3

REPORT INFORMATION
  Report Type: Spontaneous
  Country: US (occurrence: US)
  Receive Date: 20130823
  Receipt Date: 20130823
  Transmission Date: 20140515
  Serious: No
  Sender: FDA-Public Use
  Company Number: US-BRISTOL-MYERS SQUIBB COMPANY-18972851

PATIENT
  Sex: Female
  Weight: 126.07 kg

DRUGS (10)
  1. SPRYCEL [Suspect]
     Indication: CHRONIC MYELOID LEUKAEMIA
     Dosage: 70MG TABLET
     Route: 048
     Dates: start: 201302
  2. CARVEDILOL [Concomitant]
  3. EXCEDRIN [Concomitant]
  4. GABAPENTIN [Concomitant]
  5. OXYCODONE [Concomitant]
  6. COMPAZINE [Concomitant]
  7. REGLAN [Concomitant]
  8. SPIRONOLACTONE [Concomitant]
  9. ULTRAM [Concomitant]
  10. ZOFRAN [Concomitant]

REACTIONS (2)
  - Headache [Not Recovered/Not Resolved]
  - Nausea [Recovered/Resolved]
